FAERS Safety Report 15947193 (Version 6)
Quarter: 2019Q3

REPORT INFORMATION
  Report Type: Spontaneous
  Country: US (occurrence: US)
  Receive Date: 20190211
  Receipt Date: 20190904
  Transmission Date: 20191004
  Serious: Yes (Other)
  Sender: FDA-Public Use
  Company Number: US-PFIZER INC-2019053843

PATIENT
  Age: 37 Year
  Sex: Female
  Weight: 88.45 kg

DRUGS (4)
  1. LYRICA [Suspect]
     Active Substance: PREGABALIN
     Dosage: 300 MG, 2X/DAY (TWO 150 MG CAPSULES)
  2. LYRICA [Suspect]
     Active Substance: PREGABALIN
     Dosage: 300 MG, 2X/DAY (2 IN THE MORNING AND 2 AT NIGHT)
     Dates: start: 20180515
  3. LYRICA [Suspect]
     Active Substance: PREGABALIN
     Indication: NEUROPATHY PERIPHERAL
     Dosage: 150 MG, 2X/DAY
     Route: 048
     Dates: start: 20180515
  4. LYRICA [Suspect]
     Active Substance: PREGABALIN
     Dosage: 450 MG, DAILY

REACTIONS (7)
  - Withdrawal syndrome [Unknown]
  - Product dispensing error [Unknown]
  - Nervousness [Unknown]
  - Drug dependence [Unknown]
  - Panic reaction [Unknown]
  - Intentional product use issue [Unknown]
  - Therapeutic product effect incomplete [Unknown]
